FAERS Safety Report 7587361-X (Version None)
Quarter: 2011Q3

REPORT INFORMATION
  Report Type: 
  Country: None (occurrence: None)
  Receive Date: 20110701
  Receipt Date: 20110627
  Transmission Date: 20111222
  Serious: Yes (Life-Threatening)
  Sender: FDA-Public Use
  Company Number: DE-ASTRAZENECA-2011SE38379

PATIENT
  Age: 47 Year
  Sex: Female

DRUGS (12)
  1. DIPIPERON [Suspect]
     Route: 048
     Dates: start: 20101027, end: 20101123
  2. SEROQUEL XR [Suspect]
     Route: 048
     Dates: start: 20110106, end: 20110106
  3. LYRICA [Concomitant]
     Route: 048
     Dates: start: 20101027, end: 20101114
  4. LYRICA [Concomitant]
     Route: 048
     Dates: start: 20101115, end: 20101231
  5. SEROQUEL XR [Suspect]
     Route: 048
     Dates: start: 20110104, end: 20110105
  6. SEROQUEL XR [Suspect]
     Route: 048
     Dates: start: 20110107, end: 20110108
  7. SEROQUEL XR [Suspect]
     Route: 048
     Dates: start: 20110111
  8. DIPIPERON [Suspect]
     Route: 048
     Dates: start: 20110101
  9. DIPIPERON [Suspect]
     Route: 048
     Dates: start: 20101124, end: 20101231
  10. LYRICA [Concomitant]
     Dosage: 300-200 MG DAILY
     Route: 048
     Dates: start: 20110101
  11. SEROQUEL XR [Suspect]
     Route: 048
     Dates: start: 20110109, end: 20110110
  12. EUTHYROX [Concomitant]
     Route: 048

REACTIONS (1)
  - THROMBOSIS [None]
